FAERS Safety Report 9300861 (Version 3)
Quarter: 2013Q3

REPORT INFORMATION
  Report Type: Spontaneous
  Country: US (occurrence: US)
  Receive Date: 20130521
  Receipt Date: 20130731
  Transmission Date: 20140515
  Serious: Yes (Life-Threatening, Other)
  Sender: FDA-Public Use
  Company Number: US-GILEAD-2013-0075228

PATIENT
  Age: 54 Year
  Sex: Male

DRUGS (8)
  1. TRUVADA [Suspect]
     Indication: PRODUCT USED FOR UNKNOWN INDICATION
     Dosage: UNK
     Dates: start: 20120612, end: 20130510
  2. TRILEPTAL [Concomitant]
     Dosage: 1200 MG, QD
  3. LUVOX [Concomitant]
     Dosage: 300 MG, QD
  4. PRILOSEC                           /00661201/ [Concomitant]
     Dosage: 20 MG, UNK
  5. NORVASC [Concomitant]
     Dosage: 10 MG, QD
  6. LIBRIUM                            /00011501/ [Concomitant]
     Dosage: 30 MG, QD
  7. DALMANE [Concomitant]
     Dosage: 30 MG, QD
  8. APAP [Concomitant]
     Dosage: 3000 MG, QD

REACTIONS (10)
  - Malaise [Unknown]
  - Pollakiuria [Not Recovered/Not Resolved]
  - Glucose urine present [Recovered/Resolved]
  - Gastric disorder [Unknown]
  - Unevaluable event [Unknown]
  - Blood phosphorus abnormal [Recovered/Resolved]
  - Blood glucose abnormal [Unknown]
  - Pain [Not Recovered/Not Resolved]
  - Myalgia [Not Recovered/Not Resolved]
  - Fanconi syndrome acquired [Recovered/Resolved]
